FAERS Safety Report 5771388-4 (Version None)
Quarter: 2008Q2

REPORT INFORMATION
  Report Type: 
  Country: None (occurrence: None)
  Receive Date: 20080610
  Receipt Date: 20080528
  Transmission Date: 20081010
  Serious: Yes (Hospitalization)
  Sender: FDA-Public Use
  Company Number: 2008AL006055

PATIENT
  Age: 62 Year
  Sex: Female
  Weight: 49.8957 kg

DRUGS (6)
  1. DIGOXIN [Suspect]
     Indication: ATRIAL FIBRILLATION
     Dosage: PO, DAILY
     Route: 048
     Dates: start: 20070401, end: 20080401
  2. COUMADIN [Concomitant]
  3. ATENOLOL [Concomitant]
  4. SPIRONOLACTONE [Concomitant]
  5. FUROSEMIDE [Concomitant]
  6. ZOCOR [Concomitant]

REACTIONS (2)
  - CHEST PAIN [None]
  - HEART RATE DECREASED [None]
